FAERS Safety Report 19603304 (Version 1)
Quarter: 2021Q3

REPORT INFORMATION
  Report Type: Spontaneous
  Country: GB (occurrence: GB)
  Receive Date: 20210723
  Receipt Date: 20210723
  Transmission Date: 20211014
  Serious: Yes (Other)
  Sender: FDA-Public Use
  Company Number: GB-TEVA-2021-GB-1934386

PATIENT
  Age: 76 Year
  Sex: Female
  Weight: 72 kg

DRUGS (8)
  1. ADIPINE MR [Concomitant]
     Dosage: 1 DOSAGE FORMS DAILY;
     Dates: start: 20210318
  2. MOVELAT [Concomitant]
     Dosage: APPLY 3 TIMES/DAY AS NEEDED
     Dates: start: 20200908
  3. OMEPRAZOLE. [Concomitant]
     Active Substance: OMEPRAZOLE
     Dosage: 2 DOSAGE FORMS DAILY;
     Dates: start: 20210625
  4. AMOXICILLIN. [Concomitant]
     Active Substance: AMOXICILLIN
     Dosage: 3 DOSAGE FORMS DAILY;
     Dates: start: 20210603, end: 20210610
  5. EZETIMIBE. [Suspect]
     Active Substance: EZETIMIBE
     Dosage: 10 MILLIGRAM DAILY;
     Dates: start: 20200908, end: 20210426
  6. IRBESARTAN. [Concomitant]
     Active Substance: IRBESARTAN
     Dosage: 1 DOSAGE FORMS DAILY;
     Dates: start: 20200908
  7. BENDROFLUMETHIAZIDE [Concomitant]
     Active Substance: BENDROFLUMETHIAZIDE
     Dosage: 1 DOSAGE FORMS DAILY; IN THE MORNING
     Dates: start: 20200908
  8. NAPROXEN. [Concomitant]
     Active Substance: NAPROXEN
     Dosage: 2 DOSAGE FORMS DAILY;
     Dates: start: 20210625

REACTIONS (1)
  - Contusion [Unknown]

NARRATIVE: CASE EVENT DATE: 20210713
